FAERS Safety Report 4606096-6 (Version None)
Quarter: 2005Q1

REPORT INFORMATION
  Report Type: 
  Country: None (occurrence: None)
  Receive Date: 20050309
  Receipt Date: 20050216
  Transmission Date: 20050727
  Serious: Yes (Death, Hospitalization)
  Sender: FDA-Public Use
  Company Number: USA050290980

PATIENT
  Age: 80 Year
  Sex: Male

DRUGS (5)
  1. ZYPREXA [Suspect]
     Indication: ANGER
     Dosage: 5 MG/2 DAY
  2. ARTANE [Concomitant]
  3. SINEMET [Concomitant]
  4. AVAPRO [Concomitant]
  5. COREG [Concomitant]

REACTIONS (2)
  - DISEASE PROGRESSION [None]
  - PARKINSONISM [None]
